FAERS Safety Report 11374628 (Version 1)
Quarter: 2015Q3

REPORT INFORMATION
  Report Type: Spontaneous
  Country: US (occurrence: None)
  Receive Date: 20150812
  Receipt Date: 20150812
  Transmission Date: 20151125
  Serious: No
  Sender: FDA-Public Use
  Company Number: None

PATIENT
  Age: 27 Year
  Sex: Female
  Weight: 49.9 kg

DRUGS (9)
  1. PROMETHAZINE [Concomitant]
     Active Substance: PROMETHAZINE\PROMETHAZINE HYDROCHLORIDE
  2. ONDANSETRON [Concomitant]
     Active Substance: ONDANSETRON
  3. PROBIOTIC MULTI-ENZYME [Concomitant]
  4. ASTEPRO [Suspect]
     Active Substance: AZELASTINE HYDROCHLORIDE
     Dosage: 205.5 MCG
     Dates: start: 20150810, end: 20150810
  5. ALBUTEROL SULFATE INHALER [Concomitant]
  6. NASONEX [Concomitant]
     Active Substance: MOMETASONE FUROATE
  7. ASMANEX [Concomitant]
     Active Substance: MOMETASONE FUROATE
  8. FOLIC ACID. [Concomitant]
     Active Substance: FOLIC ACID
  9. ACTIVE ACIDOPHILUS CULTURE/SPRING VALLEY [Concomitant]

REACTIONS (7)
  - Vomiting [None]
  - Dysgeusia [None]
  - Headache [None]
  - Parosmia [None]
  - Sneezing [None]
  - Asthenia [None]
  - Rhinorrhoea [None]

NARRATIVE: CASE EVENT DATE: 20150810
